FAERS Safety Report 9896761 (Version 2)
Quarter: 2014Q1

REPORT INFORMATION
  Report Type: Spontaneous
  Country: US (occurrence: US)
  Receive Date: 20140213
  Receipt Date: 20140213
  Transmission Date: 20141002
  Serious: No
  Sender: FDA-Public Use
  Company Number: US-BRISTOL-MYERS SQUIBB COMPANY-19185552

PATIENT
  Age: 51 Year
  Sex: Female

DRUGS (2)
  1. ABATACEPT SUBQ INJECTION 125MG/ML [Suspect]
     Indication: RHEUMATOID ARTHRITIS
     Route: 058
     Dates: start: 20130719
  2. NEURONTIN [Concomitant]
     Indication: TRIGEMINAL NEURALGIA

REACTIONS (3)
  - Headache [Unknown]
  - Incorrect product storage [Unknown]
  - Nausea [Unknown]
